FAERS Safety Report 10640999 (Version 1)
Quarter: 2014Q4

REPORT INFORMATION
  Report Type: Spontaneous
  Country: US (occurrence: US)
  Receive Date: 20141209
  Receipt Date: 20141209
  Transmission Date: 20150529
  Serious: No
  Sender: FDA-Public Use
  Company Number: US-PFIZER INC-2014334181

PATIENT
  Age: 56 Year
  Sex: Female

DRUGS (2)
  1. MONISTAT [Concomitant]
     Active Substance: MICONAZOLE NITRATE
  2. ESTRING [Suspect]
     Active Substance: ESTRADIOL

REACTIONS (1)
  - Vulvovaginal discomfort [Unknown]
